FAERS Safety Report 18168421 (Version 1)
Quarter: 2020Q3

REPORT INFORMATION
  Report Type: Spontaneous
  Country: IT (occurrence: IT)
  Receive Date: 20200819
  Receipt Date: 20200819
  Transmission Date: 20201103
  Serious: Yes (Other)
  Sender: FDA-Public Use
  Company Number: IT-VELOXIS PHARMACEUTICALS-2020VELIT-000646

PATIENT
  Age: 41 Year
  Sex: Female

DRUGS (14)
  1. BASILIXIMAB [Suspect]
     Active Substance: BASILIXIMAB
     Indication: RENAL TRANSPLANT
     Dosage: UNK
     Route: 065
  2. STEROIDS [Suspect]
     Active Substance: UNSPECIFIED INGREDIENT
     Indication: RENAL TRANSPLANT
  3. LAMIVUDINE. [Concomitant]
     Active Substance: LAMIVUDINE
     Dosage: UNK UNK, UNKNOWN FREQ.
  4. DOLUTEGRAVIR [Concomitant]
     Active Substance: DOLUTEGRAVIR
     Indication: HIV INFECTION
     Dosage: UNK UNK, UNKNOWN FREQ.
     Route: 065
  5. ENVARSUS XR [Interacting]
     Active Substance: TACROLIMUS
     Indication: RENAL TRANSPLANT
  6. ATAZANAVIR. [Interacting]
     Active Substance: ATAZANAVIR
     Indication: HIV INFECTION
     Dosage: UNK
     Route: 065
  7. RITONAVIR. [Interacting]
     Active Substance: RITONAVIR
     Indication: HIV INFECTION
     Dosage: UNK
     Route: 065
  8. ABACAVIR. [Concomitant]
     Active Substance: ABACAVIR
     Dosage: UNK UNK, UNKNOWN FREQ
  9. ENVARSUS XR [Suspect]
     Active Substance: TACROLIMUS
     Indication: PRODUCT USED FOR UNKNOWN INDICATION
     Dosage: UNK, UNKNOWN FREQ.
     Route: 065
  10. DOLUTEGRAVIR [Concomitant]
     Active Substance: DOLUTEGRAVIR
     Dosage: UNK UNK, UNKNOWN FREQ.
  11. ABACAVIR. [Concomitant]
     Active Substance: ABACAVIR
     Indication: HIV INFECTION
     Dosage: UNK UNK, UNKNOWN FREQ
     Route: 065
  12. MYCOPHENOLIC ACID. [Suspect]
     Active Substance: MYCOPHENOLIC ACID
     Indication: RENAL TRANSPLANT
     Dosage: UNK
     Route: 065
  13. LAMIVUDINE. [Concomitant]
     Active Substance: LAMIVUDINE
     Indication: HIV INFECTION
     Dosage: UNK UNK, UNKNOWN FREQ.
     Route: 065
  14. LAMIVUDINE. [Concomitant]
     Active Substance: LAMIVUDINE
     Dosage: UNK UNK, UNKNOWN FREQ.

REACTIONS (6)
  - Thrombotic microangiopathy [Recovered/Resolved]
  - Diabetes mellitus [Unknown]
  - Diarrhoea haemorrhagic [Unknown]
  - Immunosuppressant drug level increased [Unknown]
  - Kidney transplant rejection [Unknown]
  - Drug interaction [Unknown]
